FAERS Safety Report 7222270-7 (Version None)
Quarter: 2011Q1

REPORT INFORMATION
  Report Type: 
  Country: None (occurrence: None)
  Receive Date: 20110112
  Receipt Date: 20110106
  Transmission Date: 20110831
  Serious: Yes (Hospitalization, Disabling, Other)
  Sender: FDA-Public Use
  Company Number: US-MERCK-1002USA03616

PATIENT
  Age: 46 Year
  Sex: Female
  Weight: 57 kg

DRUGS (10)
  1. FOSAMAX [Suspect]
     Indication: OSTEOPOROSIS
     Route: 048
     Dates: start: 20070310, end: 20100101
  2. FOSAMAX [Suspect]
     Route: 048
     Dates: start: 20070310, end: 20080201
  3. FOSAMAX [Suspect]
     Route: 048
     Dates: start: 20070310, end: 20080201
  4. ACTONEL [Suspect]
     Indication: OSTEOPENIA
     Route: 065
     Dates: start: 20030328, end: 20060530
  5. AZITHROMYCIN [Concomitant]
     Indication: BACTERIAL INFECTION
     Route: 065
     Dates: start: 20060109, end: 20070617
  6. ACTONEL [Suspect]
     Indication: OSTEOPOROSIS
     Route: 065
     Dates: start: 20030328, end: 20060530
  7. FOSAMAX [Suspect]
     Route: 048
  8. FOSAMAX [Suspect]
     Indication: OSTEOPENIA
     Route: 048
     Dates: start: 20070310, end: 20100101
  9. FOSAMAX [Suspect]
     Route: 048
  10. SIMVASTATIN [Concomitant]
     Indication: BLOOD CHOLESTEROL INCREASED
     Route: 065
     Dates: start: 20070304, end: 20071215

REACTIONS (24)
  - ANXIETY [None]
  - SPINAL OSTEOARTHRITIS [None]
  - ORAL INFECTION [None]
  - EXOSTOSIS [None]
  - OSTEOMYELITIS [None]
  - DEPRESSION [None]
  - DIARRHOEA [None]
  - VERTEBRAL FORAMINAL STENOSIS [None]
  - HYPERTONIC BLADDER [None]
  - MUCOSAL ULCERATION [None]
  - MOUTH INJURY [None]
  - ADVERSE EVENT [None]
  - RESPIRATORY DISORDER [None]
  - BACTERIAL INFECTION [None]
  - OSTEONECROSIS OF JAW [None]
  - OESOPHAGEAL RUPTURE [None]
  - INJURY [None]
  - INTERVERTEBRAL DISC PROTRUSION [None]
  - ORAL TORUS [None]
  - DYSPHAGIA [None]
  - IMPAIRED HEALING [None]
  - BLOOD PRESSURE INCREASED [None]
  - EAR, NOSE AND THROAT EXAMINATION ABNORMAL [None]
  - GASTROOESOPHAGEAL REFLUX DISEASE [None]
